FAERS Safety Report 13416382 (Version 1)
Quarter: 2017Q2

REPORT INFORMATION
  Report Type: Spontaneous
  Country: US (occurrence: US)
  Receive Date: 20170407
  Receipt Date: 20170407
  Transmission Date: 20170830
  Serious: Yes (Other)
  Sender: FDA-Public Use
  Company Number: US-SA-2017SA057960

PATIENT
  Sex: Female

DRUGS (3)
  1. WATER PILLS [Concomitant]
     Active Substance: UNSPECIFIED INGREDIENT
  2. LANTUS [Suspect]
     Active Substance: INSULIN GLARGINE
     Indication: TYPE 2 DIABETES MELLITUS
     Dosage: DOSE:50 UNIT(S)
     Route: 065
  3. HUMALOG [Suspect]
     Active Substance: INSULIN LISPRO
     Route: 065

REACTIONS (8)
  - Cellulitis [Unknown]
  - Chronic obstructive pulmonary disease [Unknown]
  - Blood glucose fluctuation [Unknown]
  - Eye disorder [Unknown]
  - Abasia [Unknown]
  - Neuropathy peripheral [Unknown]
  - Wound [Unknown]
  - Headache [Unknown]
